FAERS Safety Report 21917600 (Version 1)
Quarter: 2023Q1

REPORT INFORMATION
  Report Type: Spontaneous
  Country: BR (occurrence: BR)
  Receive Date: 20230127
  Receipt Date: 20230127
  Transmission Date: 20230417
  Serious: Yes (Hospitalization, Other)
  Sender: FDA-Public Use
  Company Number: BR-NOVOPROD-1016806

PATIENT
  Age: 14 Year
  Sex: Male
  Weight: 50 kg

DRUGS (3)
  1. NORDITROPIN [Suspect]
     Active Substance: SOMATROPIN
     Indication: Growth disorder
     Dosage: 2.5 MG, QD
     Dates: start: 20220729
  2. NORDITROPIN [Suspect]
     Active Substance: SOMATROPIN
     Dosage: UNK (RESTARTED)
  3. ANASTROZOLE [Concomitant]
     Active Substance: ANASTROZOLE
     Indication: Prophylaxis

REACTIONS (2)
  - Tibia fracture [Recovered/Resolved]
  - Arthralgia [Not Recovered/Not Resolved]

NARRATIVE: CASE EVENT DATE: 20220901
